FAERS Safety Report 15982172 (Version 1)
Quarter: 2019Q1

REPORT INFORMATION
  Report Type: Spontaneous
  Country: DK (occurrence: DK)
  Receive Date: 20190219
  Receipt Date: 20190219
  Transmission Date: 20190418
  Serious: Yes (Hospitalization)
  Sender: FDA-Public Use
  Company Number: DK-PFIZER INC-2019070200

PATIENT
  Age: 70 Year
  Sex: Female

DRUGS (1)
  1. IBRANCE [Suspect]
     Active Substance: PALBOCICLIB
     Dosage: UNK

REACTIONS (4)
  - Pyrexia [Unknown]
  - Neutropenia [Unknown]
  - Staphylococcal infection [Unknown]
  - General physical health deterioration [Unknown]
